FAERS Safety Report 12645173 (Version 1)
Quarter: 2016Q3

REPORT INFORMATION
  Report Type: Report from Study
  Country: DE (occurrence: DE)
  Receive Date: 20160811
  Receipt Date: 20160811
  Transmission Date: 20161109
  Serious: Yes (Death, Hospitalization)
  Sender: FDA-Public Use
  Company Number: DE-JNJFOC-20160807903

PATIENT
  Age: 89 Year
  Sex: Female
  Weight: 60 kg

DRUGS (6)
  1. SIMVASTATIN. [Concomitant]
     Active Substance: SIMVASTATIN
     Route: 065
  2. TORASEMID [Concomitant]
     Active Substance: TORSEMIDE
     Route: 065
  3. XARELTO [Suspect]
     Active Substance: RIVAROXABAN
     Indication: CEREBROVASCULAR ACCIDENT PROPHYLAXIS
     Route: 048
  4. ASPIRIN. [Concomitant]
     Active Substance: ASPIRIN
     Route: 065
  5. XARELTO [Suspect]
     Active Substance: RIVAROXABAN
     Indication: ATRIAL FIBRILLATION
     Route: 048
  6. MELPERON [Concomitant]
     Active Substance: MELPERONE
     Route: 065

REACTIONS (3)
  - Hypertensive crisis [Fatal]
  - Cerebral haemorrhage [Fatal]
  - Sopor [Fatal]

NARRATIVE: CASE EVENT DATE: 20160803
